FAERS Safety Report 4289703-X (Version None)
Quarter: 2004Q1

REPORT INFORMATION
  Report Type: 
  Country: None (occurrence: None)
  Receive Date: 20040123
  Receipt Date: 20031023
  Transmission Date: 20041129
  Serious: Yes (Hospitalization)
  Sender: FDA-Public Use
  Company Number: LOV-US-03-00156

PATIENT
  Age: 79 Year
  Sex: Male

DRUGS (7)
  1. ALTOCOR [Suspect]
     Dosage: 60 MG PO
     Route: 048
  2. VERAPAMIL [Concomitant]
  3. NEXIUM [Concomitant]
  4. FLOMAX [Concomitant]
  5. CELEBREX [Concomitant]
  6. ASPIRIN [Concomitant]
  7. QUININE [Concomitant]

REACTIONS (5)
  - ATRIAL FIBRILLATION [None]
  - CHOLECYSTITIS [None]
  - DEHYDRATION [None]
  - LIVER FUNCTION TEST ABNORMAL [None]
  - RHABDOMYOLYSIS [None]
